FAERS Safety Report 20133782 (Version 1)
Quarter: 2021Q4

REPORT INFORMATION
  Report Type: Report from Study
  Country: US (occurrence: US)
  Receive Date: 20211201
  Receipt Date: 20211201
  Transmission Date: 20220303
  Serious: No
  Sender: FDA-Public Use
  Company Number: US-NOVARTISTESTPH-NVSC2019US104629

PATIENT
  Sex: Female
  Weight: 63.039 kg

DRUGS (2)
  1. LETROZOLE [Suspect]
     Active Substance: LETROZOLE
     Indication: Product used for unknown indication
     Dosage: UNK
     Route: 065
  2. LUTATHERA [Suspect]
     Active Substance: LUTETIUM OXODOTREOTIDE LU-177
     Indication: Product used for unknown indication
     Dosage: UNK
     Route: 065

REACTIONS (7)
  - Blood chromogranin A increased [Unknown]
  - Abdominal discomfort [Unknown]
  - Lymphocyte count decreased [Unknown]
  - Vertigo [Unknown]
  - Fatigue [Unknown]
  - Abdominal pain [Unknown]
  - Blood pressure systolic increased [Unknown]
